FAERS Safety Report 5912489-7 (Version None)
Quarter: 2008Q4

REPORT INFORMATION
  Report Type: 
  Country: None (occurrence: None)
  Receive Date: 20081007
  Receipt Date: 20081007
  Transmission Date: 20090506
  Serious: Yes (Life-Threatening)
  Sender: FDA-Public Use
  Company Number: None

PATIENT
  Age: 51 Year
  Sex: Female
  Weight: 85.7298 kg

DRUGS (1)
  1. CHANTIX [Suspect]

REACTIONS (8)
  - AGITATION [None]
  - CRYING [None]
  - DEPRESSION [None]
  - INTENTIONAL SELF-INJURY [None]
  - IRRITABILITY [None]
  - MARITAL PROBLEM [None]
  - STRESS [None]
  - WEIGHT INCREASED [None]
